FAERS Safety Report 8507208-4 (Version None)
Quarter: 2012Q3

REPORT INFORMATION
  Report Type: 
  Country: None (occurrence: None)
  Receive Date: 20120712
  Receipt Date: 20120702
  Transmission Date: 20120928
  Serious: Yes (Other)
  Sender: FDA-Public Use
  Company Number: US-009507513-1206USA03915

PATIENT

DRUGS (2)
  1. FINASTERIDE [Concomitant]
     Dosage: 1 MG, UNK
     Route: 048
  2. PROPECIA [Suspect]
     Indication: ALOPECIA
     Dosage: 1 MG, UNK
     Route: 048
     Dates: start: 20040101, end: 20110101

REACTIONS (1)
  - SEXUAL DYSFUNCTION [None]
